FAERS Safety Report 14629956 (Version 1)
Quarter: 2018Q1

REPORT INFORMATION
  Report Type: Spontaneous
  Country: US (occurrence: US)
  Receive Date: 20180313
  Receipt Date: 20180313
  Transmission Date: 20180509
  Serious: No
  Sender: FDA-Public Use
  Company Number: US-GLENMARK PHARMACEUTICALS-2017GMK026544

PATIENT

DRUGS (4)
  1. LAMOTRIGINE CHEWABLE DISPERSIBLE TABLETS [Suspect]
     Active Substance: LAMOTRIGINE
     Dosage: 10 MG, QD
     Route: 048
     Dates: start: 20170129
  2. LAMOTRIGINE CHEWABLE DISPERSIBLE TABLETS [Suspect]
     Active Substance: LAMOTRIGINE
     Indication: AFFECTIVE DISORDER
     Dosage: 5 MG, QD
     Route: 048
     Dates: start: 20170122
  3. LAMOTRIGINE CHEWABLE DISPERSIBLE TABLETS [Suspect]
     Active Substance: LAMOTRIGINE
     Dosage: 10 MG, QD
     Route: 048
     Dates: start: 20170211, end: 20170213
  4. LAMOTRIGINE CHEWABLE DISPERSIBLE TABLETS [Suspect]
     Active Substance: LAMOTRIGINE
     Dosage: 15 MG, QD
     Route: 048
     Dates: start: 20170205

REACTIONS (3)
  - Agitation [Unknown]
  - Wrong technique in product usage process [Unknown]
  - Rash generalised [Recovering/Resolving]

NARRATIVE: CASE EVENT DATE: 20170211
